FAERS Safety Report 10167511 (Version 1)
Quarter: 2014Q2

REPORT INFORMATION
  Report Type: Spontaneous
  Country: US (occurrence: US)
  Receive Date: 20140512
  Receipt Date: 20140512
  Transmission Date: 20141212
  Serious: No
  Sender: FDA-Public Use
  Company Number: US-PFIZER INC-2014126017

PATIENT
  Age: 72 Year
  Sex: Male
  Weight: 85 kg

DRUGS (5)
  1. LIPITOR [Suspect]
     Indication: CORONARY ARTERY BYPASS
     Dosage: 40 MG, 1X/DAY
     Route: 048
     Dates: start: 201401
  2. COUMADINE [Concomitant]
     Dosage: UNK
  3. JALYN [Concomitant]
     Dosage: UNK
  4. METOPROLOL [Concomitant]
     Dosage: UNK
  5. FERROUS SULPHATE [Concomitant]
     Dosage: UNK

REACTIONS (2)
  - Heart rate irregular [Unknown]
  - Anaemia [Unknown]
